FAERS Safety Report 25851723 (Version 2)
Quarter: 2025Q3

REPORT INFORMATION
  Report Type: Spontaneous
  Country: BR (occurrence: BR)
  Receive Date: 20250926
  Receipt Date: 20250930
  Transmission Date: 20251020
  Serious: Yes (Disabling, Other)
  Sender: BOEHRINGER INGELHEIM
  Company Number: BR-Komodo Health-a23aa00000ALHePAAX

PATIENT
  Age: 67 Year
  Sex: Female
  Weight: 63 kg

DRUGS (7)
  1. ATROVENT [Suspect]
     Active Substance: IPRATROPIUM BROMIDE
     Indication: Asthma
  2. SPIRIVA RESPIMAT [Suspect]
     Active Substance: TIOTROPIUM BROMIDE
     Indication: Asthma
  3. BEROTEC [Suspect]
     Active Substance: FENOTEROL HYDROBROMIDE
     Indication: Asthma
  4. Alenia [Concomitant]
     Indication: Product used for unknown indication
  5. MONTELUKAST SODIUM [Concomitant]
     Active Substance: MONTELUKAST SODIUM
     Indication: Product used for unknown indication
     Dosage: ONCE IN THE EVENING
  6. FLUDROCORTISONE ACETATE [Concomitant]
     Active Substance: FLUDROCORTISONE ACETATE
     Indication: Product used for unknown indication
  7. PURAN [Concomitant]
     Active Substance: LEVOTHYROXINE SODIUM
     Indication: Thyroid disorder
     Dosage: ONE IN THE MORNING ON AN EMPTY STOMACH

REACTIONS (17)
  - Macular degeneration [Unknown]
  - Asthmatic crisis [Unknown]
  - Glaucoma [Unknown]
  - Blindness unilateral [Unknown]
  - Cataract [Unknown]
  - Device use issue [Unknown]
  - Body height decreased [Unknown]
  - Diabetes mellitus [Unknown]
  - Sinusitis [Unknown]
  - Hypotension [Unknown]
  - Intestinal operation [Unknown]
  - Choking [Unknown]
  - Hydrocephalus [Unknown]
  - Dysphonia [Unknown]
  - Adrenal disorder [Unknown]
  - Asthma [Unknown]
  - Device occlusion [Unknown]

NARRATIVE: CASE EVENT DATE: 20140101
